FAERS Safety Report 16339271 (Version 1)
Quarter: 2019Q2

REPORT INFORMATION
  Report Type: Spontaneous
  Country: US (occurrence: US)
  Receive Date: 20190521
  Receipt Date: 20190521
  Transmission Date: 20190711
  Serious: No
  Sender: FDA-Public Use
  Company Number: US-GE HEALTHCARE LIFE SCIENCES-2019CSU002610

PATIENT
  Sex: Female

DRUGS (4)
  1. CERETEC [Suspect]
     Active Substance: TECHNETIUM TC-99M EXAMETAZIME
     Indication: SCAN BRAIN
     Dosage: 999 MBQ/ 27 MCI, ONCE
     Route: 042
     Dates: start: 20190417, end: 20190417
  2. CERETEC [Suspect]
     Active Substance: TECHNETIUM TC-99M EXAMETAZIME
     Indication: PRODUCT USED FOR UNKNOWN INDICATION
     Dosage: 999 MBQ/ 27 MCI, ONCE
     Route: 042
     Dates: start: 20190418, end: 20190418
  3. TECHNETIUM TC 99M [Concomitant]
     Active Substance: TECHNETIUM TC-99M
     Dosage: UNK, SINGLE
     Route: 042
     Dates: start: 20190418, end: 20190418
  4. TECHNETIUM TC 99M [Concomitant]
     Active Substance: TECHNETIUM TC-99M
     Dosage: UNK, SINGLE
     Route: 042
     Dates: start: 20190417, end: 20190417

REACTIONS (5)
  - Headache [Not Recovered/Not Resolved]
  - Pain [Not Recovered/Not Resolved]
  - Nausea [Not Recovered/Not Resolved]
  - Neuropathy peripheral [Not Recovered/Not Resolved]
  - Chills [Not Recovered/Not Resolved]

NARRATIVE: CASE EVENT DATE: 20190418
